FAERS Safety Report 12338558 (Version 1)
Quarter: 2016Q2

REPORT INFORMATION
  Report Type: Spontaneous
  Country: US (occurrence: US)
  Receive Date: 20160505
  Receipt Date: 20160505
  Transmission Date: 20160815
  Serious: Yes (Hospitalization)
  Sender: FDA-Public Use
  Company Number: US-VERTEX PHARMACEUTICALS-2016-002823

PATIENT
  Age: 19 Year
  Sex: Female

DRUGS (11)
  1. ORKAMBI [Suspect]
     Active Substance: IVACAFTOR\LUMACAFTOR
     Indication: CYSTIC FIBROSIS
     Dosage: 400-250MG, BID
     Route: 048
     Dates: start: 20150728
  2. NASONEX [Concomitant]
     Active Substance: MOMETASONE FUROATE
  3. CARAFATE [Concomitant]
     Active Substance: SUCRALFATE
  4. SODIUM CHLORIDE. [Concomitant]
     Active Substance: SODIUM CHLORIDE
  5. ACETYLCYSTEIN [Concomitant]
     Active Substance: ACETYLCYSTEINE
  6. PROAIR HFA [Concomitant]
     Active Substance: ALBUTEROL SULFATE
  7. MONTELUKAST [Concomitant]
     Active Substance: MONTELUKAST SODIUM
  8. URSODIOL. [Concomitant]
     Active Substance: URSODIOL
  9. LORATADINE. [Concomitant]
     Active Substance: LORATADINE
  10. PULMOZYME [Concomitant]
     Active Substance: DORNASE ALFA
  11. ESOMEPRAZOLE [Concomitant]
     Active Substance: ESOMEPRAZOLE

REACTIONS (1)
  - Hospitalisation [Unknown]

NARRATIVE: CASE EVENT DATE: 20160424
